FAERS Safety Report 13998392 (Version 1)
Quarter: 2017Q3

REPORT INFORMATION
  Report Type: Report from Study
  Country: US (occurrence: BR)
  Receive Date: 20170921
  Receipt Date: 20170921
  Transmission Date: 20171128
  Serious: Yes (Other)
  Sender: FDA-Public Use
  Company Number: US-SUNOVION-2017SUN004083

PATIENT
  Sex: Male
  Weight: 88 kg

DRUGS (2)
  1. FORASEQ [Concomitant]
     Active Substance: BUDESONIDE\FORMOTEROL FUMARATE
  2. INDACATEROL AND GLYCOPYRROLATE [Suspect]
     Active Substance: GLYCOPYRROLATE\INDACATEROL MALEATE
     Indication: CHRONIC OBSTRUCTIVE PULMONARY DISEASE
     Dosage: 1 DF (110 INDACATEROL, 50 GLYCOPYRRONIUM BROMIDE) , QD
     Route: 055

REACTIONS (3)
  - Peripheral swelling [Unknown]
  - Poisoning [Unknown]
  - Abdominal distension [Unknown]
